FAERS Safety Report 15237037 (Version 1)
Quarter: 2018Q3

REPORT INFORMATION
  Report Type: Spontaneous
  Country: US (occurrence: US)
  Receive Date: 20180803
  Receipt Date: 20180803
  Transmission Date: 20181010
  Serious: No
  Sender: FDA-Public Use
  Company Number: US-SA-2018SA208820

PATIENT
  Age: 54 Year
  Sex: Female
  Weight: 77.1 kg

DRUGS (12)
  1. CIPRO [CIPROFLOXACIN HYDROCHLORIDE MONOHYDRATE] [Concomitant]
     Dosage: 1 DF, BID
     Route: 048
     Dates: start: 20180202
  2. SODIUM CHLORIDE. [Concomitant]
     Active Substance: SODIUM CHLORIDE
     Dosage: 0.9 %, AS DIRECTED
     Route: 042
     Dates: start: 20180702
  3. EPINEPHRINE. [Concomitant]
     Active Substance: EPINEPHRINE
     Indication: ANAPHYLACTIC REACTION
     Dosage: 0.3 MG, PRN
     Route: 030
     Dates: start: 20180702
  4. NEXIUM [ESOMEPRAZOLE SODIUM] [Concomitant]
     Dosage: 1 DF, QD
     Route: 048
     Dates: start: 20160518
  5. ASPIRIN [ACETYLSALICYLIC ACID] [Concomitant]
     Active Substance: ASPIRIN
     Dosage: 1 DF, QD
     Route: 048
     Dates: start: 20160518
  6. CEREZYME [Suspect]
     Active Substance: IMIGLUCERASE
     Indication: FABRY^S DISEASE
     Dosage: 3600 UN, QW
     Route: 041
     Dates: start: 20160518
  7. SOLU?CORTEF [Concomitant]
     Active Substance: HYDROCORTISONE SODIUM SUCCINATE
     Indication: ANAPHYLACTIC REACTION
     Dosage: 100 MG, PRN
     Route: 042
     Dates: start: 20180702
  8. NORMAL SALINE [Concomitant]
     Active Substance: SODIUM CHLORIDE
     Dosage: 0.9 %, AS DIRECTED
     Route: 042
     Dates: start: 20180702
  9. STERILE WATER [Concomitant]
     Active Substance: WATER
     Indication: UNEVALUABLE EVENT
     Dosage: 1 DF, AS DIRECTED
     Route: 042
     Dates: start: 20180702
  10. VITAMIN D3 [Concomitant]
     Active Substance: CHOLECALCIFEROL
     Dosage: 1 DF, QD
     Route: 048
     Dates: start: 20160518
  11. DIPHENHYDRAMINE. [Concomitant]
     Active Substance: DIPHENHYDRAMINE
     Indication: ANAPHYLACTIC REACTION
     Dosage: 25 MG, PRN
     Route: 042
     Dates: start: 20180702
  12. CRANBERRY EXTRACT [VACCINIUM MACROCARPON] [Concomitant]
     Dosage: 1 DF, UNK
     Route: 048
     Dates: start: 20180426

REACTIONS (1)
  - Urinary tract infection [Unknown]
